FAERS Safety Report 12805396 (Version 1)
Quarter: 2016Q4

REPORT INFORMATION
  Report Type: Report from Study
  Country: US (occurrence: US)
  Receive Date: 20161004
  Receipt Date: 20161004
  Transmission Date: 20170207
  Serious: Yes (Other)
  Sender: FDA-Public Use
  Company Number: US-AMGEN-USASL2016133781

PATIENT

DRUGS (1)
  1. KYPROLIS [Suspect]
     Active Substance: CARFILZOMIB
     Indication: PRODUCT USED FOR UNKNOWN INDICATION
     Dosage: UNK
     Route: 065

REACTIONS (23)
  - Blood osmolarity increased [Unknown]
  - Tremor [Unknown]
  - Blood test abnormal [Unknown]
  - Hypokalaemia [Unknown]
  - Anaemia [Unknown]
  - Lung neoplasm malignant [Unknown]
  - Gastrooesophageal reflux disease [Unknown]
  - Neuropsychiatric symptoms [Unknown]
  - Enzyme level abnormal [Unknown]
  - Immune system disorder [Unknown]
  - Hallucination [Unknown]
  - Hypernatraemia [Unknown]
  - Decreased appetite [Unknown]
  - Hyperkalaemia [Unknown]
  - Prostatomegaly [Unknown]
  - Essential hypertension [Unknown]
  - Infection [Unknown]
  - Failure to thrive [Unknown]
  - Vascular dementia [Unknown]
  - Renal failure [Unknown]
  - Mental disorder [Unknown]
  - Respiratory disorder [Unknown]
  - Lower urinary tract symptoms [Unknown]

NARRATIVE: CASE EVENT DATE: 20151008
